FAERS Safety Report 7429511-1 (Version None)
Quarter: 2011Q2

REPORT INFORMATION
  Report Type: 
  Country: None (occurrence: None)
  Receive Date: 20110421
  Receipt Date: 20110407
  Transmission Date: 20111010
  Serious: Yes (Death, Life-Threatening, Other)
  Sender: FDA-Public Use
  Company Number: BE-CELGENEUS-013-21880-11033558

PATIENT
  Sex: Female
  Weight: 61 kg

DRUGS (8)
  1. MAXIPIM [Concomitant]
     Indication: STAPHYLOCOCCAL INFECTION
     Dosage: 6 GRAM
     Route: 051
     Dates: start: 20110323
  2. ALDACTONE [Concomitant]
     Dosage: 50 MILLIGRAM
     Route: 048
     Dates: start: 20110323
  3. REVLIMID [Suspect]
     Dosage: 10 MILLIGRAM
     Route: 048
     Dates: start: 20110310, end: 20110330
  4. CYTARABINE [Suspect]
     Dosage: 324 MILLIGRAM
     Route: 051
     Dates: start: 20110310, end: 20110316
  5. DIFLUCAN [Concomitant]
     Indication: INFECTION PROPHYLAXIS
     Dosage: 200 MILLIGRAM
     Route: 048
     Dates: start: 20110310
  6. DAUNORUBICIN HCL [Suspect]
     Dosage: 72.9 MILLIGRAM
     Route: 051
     Dates: start: 20110310, end: 20110312
  7. FUROSEMIDE [Concomitant]
     Dosage: 125 MILLIGRAM
     Route: 051
     Dates: start: 20110323
  8. ZOVIRAX [Concomitant]
     Indication: INFECTION PROPHYLAXIS
     Dosage: 1200 MILLIGRAM
     Route: 048
     Dates: start: 20110314

REACTIONS (2)
  - HYPONATRAEMIA [None]
  - MULTI-ORGAN FAILURE [None]
